FAERS Safety Report 6960514-7 (Version None)
Quarter: 2010Q3

REPORT INFORMATION
  Report Type: 
  Country: None (occurrence: None)
  Receive Date: 20100823
  Receipt Date: 20100819
  Transmission Date: 20110219
  Serious: Yes (Hospitalization, Other)
  Sender: FDA-Public Use
  Company Number: WAES 1007DEU00051

PATIENT
  Age: 51 Year
  Sex: Male

DRUGS (2)
  1. CANCIDAS [Suspect]
     Indication: ANTIFUNGAL PROPHYLAXIS
     Dosage: 70 MG/DAILY/IV, 50 MG/DAILY/IV
     Route: 042
     Dates: start: 20100430, end: 20100430
  2. CANCIDAS [Suspect]
     Indication: ANTIFUNGAL PROPHYLAXIS
     Dosage: 70 MG/DAILY/IV, 50 MG/DAILY/IV
     Route: 042
     Dates: start: 20100501, end: 20100507

REACTIONS (5)
  - ABDOMINAL WOUND DEHISCENCE [None]
  - ARTERIAL DISORDER [None]
  - BILIARY TRACT INFECTION [None]
  - INCISIONAL HERNIA [None]
  - WHITE BLOOD CELL COUNT INCREASED [None]
